FAERS Safety Report 5500557-3 (Version None)
Quarter: 2007Q4

REPORT INFORMATION
  Report Type: 
  Country: None (occurrence: None)
  Receive Date: 20071025
  Receipt Date: 20071011
  Transmission Date: 20080405
  Serious: Yes (Hospitalization)
  Sender: FDA-Public Use
  Company Number: 430092K07USA

PATIENT
  Age: 43 Year
  Sex: Female

DRUGS (1)
  1. NOVANTRONE [Suspect]
     Indication: MULTIPLE SCLEROSIS

REACTIONS (3)
  - AMNESIA [None]
  - ENCEPHALITIS [None]
  - MENINGITIS [None]
